FAERS Safety Report 17564083 (Version 1)
Quarter: 2020Q1

REPORT INFORMATION
  Report Type: Spontaneous
  Country: US (occurrence: US)
  Receive Date: 20200320
  Receipt Date: 20200320
  Transmission Date: 20200409
  Serious: Yes (Death, Hospitalization, Other)
  Sender: FDA-Public Use
  Company Number: US-ABBVIE-20K-163-3329293-00

PATIENT
  Age: 73 Year
  Sex: Female
  Weight: 55.39 kg

DRUGS (1)
  1. CREON [Suspect]
     Active Substance: PANCRELIPASE AMYLASE\PANCRELIPASE LIPASE\PANCRELIPASE PROTEASE
     Indication: PANCREATECTOMY
     Dosage: 400 CAPS PER MONTH
     Route: 048
     Dates: start: 201812

REACTIONS (6)
  - Lung cancer metastatic [Fatal]
  - Malaise [Unknown]
  - Pain [Unknown]
  - Weight decreased [Unknown]
  - Solar lentigo [Not Recovered/Not Resolved]
  - Metastases to liver [Fatal]

NARRATIVE: CASE EVENT DATE: 201908
